FAERS Safety Report 9253480 (Version 1)
Quarter: 2013Q2

REPORT INFORMATION
  Report Type: Spontaneous
  Country: US (occurrence: US)
  Receive Date: 20130425
  Receipt Date: 20130425
  Transmission Date: 20140414
  Serious: No
  Sender: FDA-Public Use
  Company Number: US-BIOGENIDEC-2013BI036902

PATIENT
  Age: 49 Year
  Sex: Female

DRUGS (1)
  1. AVONEX [Suspect]
     Indication: MULTIPLE SCLEROSIS
     Route: 030
     Dates: start: 20071127, end: 20080620

REACTIONS (3)
  - Fear of injection [Recovered/Resolved]
  - Influenza like illness [Recovered/Resolved]
  - Hepatic enzyme increased [Recovered/Resolved]
